FAERS Safety Report 17599018 (Version 1)
Quarter: 2020Q1

REPORT INFORMATION
  Report Type: Spontaneous
  Country: US (occurrence: US)
  Receive Date: 20200330
  Receipt Date: 20200330
  Transmission Date: 20200409
  Serious: No
  Sender: FDA-Public Use
  Company Number: None

PATIENT
  Age: 70 Year
  Sex: Female
  Weight: 112.5 kg

DRUGS (4)
  1. EMEND 150MG IVPB [Concomitant]
     Dates: start: 20200323, end: 20200323
  2. OXALIPLATIN. [Suspect]
     Active Substance: OXALIPLATIN
     Indication: COLORECTAL CANCER
     Dosage: ?          OTHER FREQUENCY:X1;?
     Route: 042
     Dates: start: 20200323, end: 20200323
  3. DEXAMETHASONE 10MG IVPB [Concomitant]
     Dates: start: 20200323, end: 20200323
  4. GRANISETRON 1MG IVPB [Concomitant]
     Dates: start: 20200323, end: 20200323

REACTIONS (1)
  - Hot flush [None]

NARRATIVE: CASE EVENT DATE: 20200323
